FAERS Safety Report 7731750-7 (Version None)
Quarter: 2011Q3

REPORT INFORMATION
  Report Type: 
  Country: None (occurrence: None)
  Receive Date: 20110906
  Receipt Date: 20110827
  Transmission Date: 20111222
  Serious: Yes (Other)
  Sender: FDA-Public Use
  Company Number: US-ROCHE-645157

PATIENT
  Sex: Male

DRUGS (10)
  1. PEGASYS [Suspect]
     Dosage: IN WEEK 46, DOSE REDUCED
     Route: 058
     Dates: start: 20091001, end: 20100610
  2. COPEGUS [Suspect]
     Dosage: PATIENT WAS IN WEEK 46, DIVIDED DOSES
     Route: 048
     Dates: start: 20090625, end: 20100610
  3. COPEGUS [Suspect]
     Dosage: WEEK 56 OF THERAPY
     Route: 048
     Dates: start: 20100615
  4. PEGASYS [Suspect]
     Route: 058
     Dates: start: 20110826
  5. TRAMADOL HYDROCHLORIDE [Concomitant]
  6. MAGNESIUM [Concomitant]
  7. COPEGUS [Suspect]
     Route: 048
     Dates: start: 20110826
  8. PEGASYS [Suspect]
     Indication: HEPATITIS C
     Dosage: FORM:PRE-FILLED SYRINGE; THERAPY SUSPENDED IN WEEK 2.
     Route: 058
     Dates: start: 20090610
  9. PEGASYS [Suspect]
     Dosage: WEEK 56 OF THERAPY
     Route: 058
     Dates: start: 20100615
  10. COPEGUS [Suspect]
     Indication: HEPATITIS C
     Dosage: SUSPENDED 5 DAYS INTO WEEK 2
     Route: 048
     Dates: start: 20090610, end: 20090622

REACTIONS (22)
  - ABDOMINAL PAIN LOWER [None]
  - WHITE BLOOD CELL COUNT DECREASED [None]
  - PYREXIA [None]
  - OCULAR HYPERAEMIA [None]
  - SPINAL FRACTURE [None]
  - INTERVERTEBRAL DISC PROTRUSION [None]
  - NEUTROPHIL COUNT DECREASED [None]
  - DYSPNOEA [None]
  - FALL [None]
  - DYSURIA [None]
  - OROPHARYNGEAL PAIN [None]
  - DEPRESSION [None]
  - FATIGUE [None]
  - VIRAL LOAD INCREASED [None]
  - MELAENA [None]
  - VISION BLURRED [None]
  - ABDOMINAL PAIN UPPER [None]
  - RED BLOOD CELL COUNT DECREASED [None]
  - INSOMNIA [None]
  - RASH [None]
  - MALAISE [None]
  - ARTHRALGIA [None]
